FAERS Safety Report 7758858-4 (Version None)
Quarter: 2011Q3

REPORT INFORMATION
  Report Type: 
  Country: None (occurrence: None)
  Receive Date: 20110919
  Receipt Date: 20110913
  Transmission Date: 20111222
  Serious: Yes (Life-Threatening)
  Sender: FDA-Public Use
  Company Number: FR-US-EMD SERONO, INC.-7076467

PATIENT
  Sex: Female
  Weight: 48 kg

DRUGS (2)
  1. CILENGITIDE [Suspect]
     Indication: GLIOBLASTOMA MULTIFORME
     Route: 042
     Dates: start: 20110301, end: 20110809
  2. TEMOZOLOMIDE [Suspect]
     Indication: GLIOBLASTOMA MULTIFORME
     Route: 048
     Dates: start: 20110301, end: 20110806

REACTIONS (1)
  - PULMONARY EMBOLISM [None]
